FAERS Safety Report 6238097-9 (Version None)
Quarter: 2009Q2

REPORT INFORMATION
  Report Type: 
  Country: None (occurrence: None)
  Receive Date: 20090617
  Receipt Date: 20090608
  Transmission Date: 20091009
  Serious: Yes (Hospitalization)
  Sender: FDA-Public Use
  Company Number: ADR3772009

PATIENT
  Age: 69 Year
  Sex: Male

DRUGS (4)
  1. RAMIPRIL [Suspect]
     Indication: HYPERTENSION
     Dosage: 5 MG, ORAL
     Route: 048
     Dates: end: 20090218
  2. VIAGRA [Concomitant]
  3. TAMSULOSIN HCL [Concomitant]
  4. BISOPROLOL (10 MG) [Concomitant]

REACTIONS (2)
  - DRUG INTERACTION [None]
  - PRESYNCOPE [None]
